FAERS Safety Report 13790041 (Version 1)
Quarter: 2017Q3

REPORT INFORMATION
  Report Type: Report from Study
  Country: None (occurrence: AU)
  Receive Date: 20170725
  Receipt Date: 20170725
  Transmission Date: 20171127
  Serious: Yes (Other)
  Sender: FDA-Public Use
  Company Number: AU-ABBVIE-17P-008-1938046-00

PATIENT
  Age: 73 Year
  Sex: Male

DRUGS (1)
  1. LUCRIN DEPOT [Suspect]
     Active Substance: LEUPROLIDE ACETATE
     Indication: PROSTATE CANCER
     Route: 050
     Dates: start: 20160516

REACTIONS (6)
  - Prostate cancer metastatic [Unknown]
  - Chest pain [Recovering/Resolving]
  - Back pain [Recovering/Resolving]
  - Pain [Unknown]
  - Musculoskeletal chest pain [Recovering/Resolving]
  - Asthenia [Unknown]

NARRATIVE: CASE EVENT DATE: 20170327
